FAERS Safety Report 8495547-5 (Version None)
Quarter: 2012Q2

REPORT INFORMATION
  Report Type: 
  Country: None (occurrence: None)
  Receive Date: 20120403
  Receipt Date: 20110422
  Transmission Date: 20120825
  Serious: Yes (Other)
  Sender: FDA-Public Use
  Company Number: 1-0411-46

PATIENT

DRUGS (2)
  1. DERMA-SMOOTHE/FS [Suspect]
     Dosage: TOPICAL
     Route: 061
  2. ORIGINS COSMETICS FOR SENSITIVE SKIN [Concomitant]

REACTIONS (3)
  - HYPERSENSITIVITY [None]
  - LIP SWELLING [None]
  - DYSPNOEA [None]
